FAERS Safety Report 5775305-2 (Version None)
Quarter: 2008Q2

REPORT INFORMATION
  Report Type: 
  Country: None (occurrence: None)
  Receive Date: 20080616
  Receipt Date: 20080616
  Transmission Date: 20081010
  Serious: No
  Sender: FDA-Public Use
  Company Number: None

PATIENT
  Age: 59 Year
  Sex: Female
  Weight: 70.3075 kg

DRUGS (1)
  1. TAXOL [Suspect]
     Indication: BREAST CANCER
     Dosage: 325MG EVERY 2 WEEKS IV
     Route: 042
     Dates: start: 20070816, end: 20070927

REACTIONS (2)
  - BRACHIAL PLEXOPATHY [None]
  - PHRENIC NERVE PARALYSIS [None]
